FAERS Safety Report 23660199 (Version 2)
Quarter: 2024Q1

REPORT INFORMATION
  Report Type: Spontaneous
  Country: TW (occurrence: TW)
  Receive Date: 20240321
  Receipt Date: 20240327
  Transmission Date: 20240409
  Serious: Yes (Other)
  Sender: FDA-Public Use
  Company Number: TW-009507513-2403TWN006165

PATIENT
  Age: 54 Year
  Sex: Female

DRUGS (1)
  1. LETERMOVIR [Suspect]
     Active Substance: LETERMOVIR
     Dosage: UNK
     Route: 048

REACTIONS (1)
  - Cytomegalovirus viraemia [Unknown]
